FAERS Safety Report 7597212-5 (Version None)
Quarter: 2011Q3

REPORT INFORMATION
  Report Type: 
  Country: None (occurrence: None)
  Receive Date: 20110708
  Receipt Date: 20100922
  Transmission Date: 20111222
  Serious: Yes (Other)
  Sender: FDA-Public Use
  Company Number: US-GLAXOSMITHKLINE-A0882638A

PATIENT
  Age: 59 Year
  Sex: Male

DRUGS (3)
  1. UNSPECIFIED MEDICATION [Concomitant]
  2. SINGULAIR [Concomitant]
  3. FLOVENT [Suspect]
     Indication: ASTHMA
     Dosage: 1PUFF TWICE PER DAY
     Route: 055

REACTIONS (1)
  - CATARACT [None]
